FAERS Safety Report 4437098-0 (Version None)
Quarter: 2004Q3

REPORT INFORMATION
  Report Type: 
  Country: None (occurrence: None)
  Receive Date: 20040827
  Receipt Date: 20040813
  Transmission Date: 20050211
  Serious: Yes (Hospitalization)
  Sender: FDA-Public Use
  Company Number: 04P-163-0264247-00

PATIENT
  Age: 37 Year
  Sex: Male

DRUGS (9)
  1. KALETRA [Suspect]
     Indication: ACQUIRED IMMUNODEFICIENCY SYNDROME
     Dates: start: 20030724, end: 20030804
  2. KALETRA [Suspect]
     Indication: ACQUIRED IMMUNODEFICIENCY SYNDROME
     Dates: start: 20031021, end: 20031028
  3. KALETRA [Suspect]
     Indication: ACQUIRED IMMUNODEFICIENCY SYNDROME
     Dates: start: 20040128, end: 20040130
  4. EFAVIRENZ [Suspect]
     Indication: ACQUIRED IMMUNODEFICIENCY SYNDROME
     Dates: start: 20030701, end: 20030804
  5. EFAVIRENZ [Suspect]
     Indication: ACQUIRED IMMUNODEFICIENCY SYNDROME
     Dates: start: 20031021, end: 20031028
  6. EFAVIRENZ [Suspect]
     Indication: ACQUIRED IMMUNODEFICIENCY SYNDROME
     Dates: start: 20040128, end: 20040130
  7. AZITHROMYCIN [Concomitant]
  8. BACTRIM [Concomitant]
  9. ETHAMBUTOL HCL [Concomitant]

REACTIONS (11)
  - CHOLESTASIS [None]
  - DYSPNOEA [None]
  - GRANULOMA [None]
  - HEPATIC TRAUMA [None]
  - HEPATOTOXICITY [None]
  - IMMUNE RECONSTITUTION SYNDROME [None]
  - MYCOBACTERIUM AVIUM COMPLEX INFECTION [None]
  - PNEUMOCYSTIS CARINII PNEUMONIA [None]
  - RASH PAPULAR [None]
  - RASH PRURITIC [None]
  - SPLENOMEGALY [None]
